FAERS Safety Report 6729923-5 (Version None)
Quarter: 2010Q2

REPORT INFORMATION
  Report Type: 
  Country: None (occurrence: None)
  Receive Date: 20100518
  Receipt Date: 20100506
  Transmission Date: 20101027
  Serious: Yes (Hospitalization, Other)
  Sender: FDA-Public Use
  Company Number: PHEH2010US00538

PATIENT
  Sex: Female
  Weight: 59.4 kg

DRUGS (9)
  1. EXJADE [Suspect]
     Indication: HAEMOCHROMATOSIS
     Dosage: 1125 MG, QD
     Route: 048
     Dates: start: 20091013, end: 20091222
  2. CALCIUM [Concomitant]
  3. CIPRO [Concomitant]
     Dosage: UNK, DAILY
  4. IMODIUM A-D [Concomitant]
     Dosage: UNK
  5. LEVOXYL [Concomitant]
     Dosage: UNK, DAILY
     Route: 048
  6. MULTIVITAMINS AND IRON [Concomitant]
     Dosage: UNK, DAILY
     Route: 048
  7. PROCRIT [Concomitant]
     Dosage: UNK
     Dates: start: 20050729, end: 20100226
  8. VITAMIN B6 [Concomitant]
     Dosage: 200 MG DAILY
  9. VITAMIN D [Concomitant]
     Dosage: 1000 UNITS DAILY

REACTIONS (8)
  - COUGH [None]
  - DEHYDRATION [None]
  - PNEUMONIA [None]
  - PYREXIA [None]
  - RENAL FAILURE [None]
  - SEPSIS [None]
  - SERUM FERRITIN INCREASED [None]
  - URINARY TRACT INFECTION [None]
